FAERS Safety Report 8375762-1 (Version None)
Quarter: 2012Q1

REPORT INFORMATION
  Report Type: 
  Country: None (occurrence: None)
  Receive Date: 20120323
  Receipt Date: 20111205
  Transmission Date: 20120608
  Serious: Yes (Other)
  Sender: FDA-Public Use
  Company Number: 163-21880-11110397

PATIENT
  Age: 85 Year
  Sex: Male
  Weight: 71.6683 kg

DRUGS (2)
  1. REVLIMID [Suspect]
     Indication: MYELODYSPLASTIC SYNDROME
     Dosage: 10 MG, 1 IN 1 D, PO ; 5 MG, 1 IN 1 D, PO
     Route: 048
     Dates: start: 20111101
  2. REVLIMID [Suspect]
     Indication: MYELODYSPLASTIC SYNDROME
     Dosage: 10 MG, 1 IN 1 D, PO ; 5 MG, 1 IN 1 D, PO
     Route: 048
     Dates: start: 20110729

REACTIONS (4)
  - PRURITUS [None]
  - KIDNEY INFECTION [None]
  - THYROID FUNCTION TEST ABNORMAL [None]
  - DRY SKIN [None]
